FAERS Safety Report 20097466 (Version 1)
Quarter: 2021Q4

REPORT INFORMATION
  Report Type: Spontaneous
  Country: HU (occurrence: HU)
  Receive Date: 20211122
  Receipt Date: 20211122
  Transmission Date: 20220303
  Serious: Yes (Life-Threatening)
  Sender: FDA-Public Use
  Company Number: HU-NOVARTISPH-NVSC2021HU265740

PATIENT
  Age: 12 Year
  Sex: Male

DRUGS (1)
  1. ELTROMBOPAG [Suspect]
     Active Substance: ELTROMBOPAG
     Indication: Immune thrombocytopenia
     Dosage: UNK
     Route: 065
     Dates: start: 20170519

REACTIONS (1)
  - Platelet disorder [Unknown]

NARRATIVE: CASE EVENT DATE: 20170101
